FAERS Safety Report 4518094-1 (Version None)
Quarter: 2004Q4

REPORT INFORMATION
  Report Type: 
  Country: None (occurrence: None)
  Receive Date: 20041130
  Receipt Date: 20041117
  Transmission Date: 20050328
  Serious: Yes (Life-Threatening, Other)
  Sender: FDA-Public Use
  Company Number: HQWYE491317NOV04

PATIENT
  Sex: Female

DRUGS (3)
  1. RIFUN (PANTOPRAZOLE, TABLET, DELAYED RELEASE) [Suspect]
     Dosage: 40 MG
  2. SORTIS ^GOEDECKE^ (ATORVASTATIN SODIUM) [Concomitant]
  3. INFLUENZA VIRUS VACCINE (INFLUENZA VIRUS VACCINE POLYVALENT) [Concomitant]

REACTIONS (3)
  - ECZEMA [None]
  - LARYNX IRRITATION [None]
  - OESOPHAGEAL DISORDER [None]
